FAERS Safety Report 13286171 (Version 4)
Quarter: 2017Q2

REPORT INFORMATION
  Report Type: Spontaneous
  Country: US (occurrence: US)
  Receive Date: 20170301
  Receipt Date: 20170410
  Transmission Date: 20170830
  Serious: Yes (Hospitalization, Other)
  Sender: FDA-Public Use
  Company Number: US-ACTELION-A-NJ2017-150520

PATIENT
  Age: 39 Year
  Sex: Female
  Weight: 99.77 kg

DRUGS (9)
  1. VANCOMYCIN [Suspect]
     Active Substance: VANCOMYCIN
     Indication: PRODUCT USED FOR UNKNOWN INDICATION
     Route: 042
  2. REMODULIN [Concomitant]
     Active Substance: TREPROSTINIL
  3. UPTRAVI [Suspect]
     Active Substance: SELEXIPAG
     Indication: PULMONARY ARTERIAL HYPERTENSION
     Dosage: 1400 MCG, BID
     Route: 048
  4. ELIQUIS [Concomitant]
     Active Substance: APIXABAN
  5. SILDENAFIL. [Concomitant]
     Active Substance: SILDENAFIL
     Dosage: 20 MG, TID
     Dates: start: 2010
  6. UPTRAVI [Suspect]
     Active Substance: SELEXIPAG
     Dosage: 400 MCG, BID
     Route: 048
  7. LETAIRIS [Concomitant]
     Active Substance: AMBRISENTAN
     Dosage: 10 MG, QD
     Dates: start: 201507
  8. UPTRAVI [Suspect]
     Active Substance: SELEXIPAG
     Dosage: 200 MCG, BID
     Route: 048
  9. UPTRAVI [Suspect]
     Active Substance: SELEXIPAG
     Dosage: 1000 MCG, BID
     Route: 048

REACTIONS (12)
  - Chest pain [Unknown]
  - Drug hypersensitivity [Unknown]
  - Headache [Unknown]
  - Pneumothorax [Unknown]
  - Nausea [Unknown]
  - Sepsis [Unknown]
  - Pneumonia [Recovering/Resolving]
  - Pleural effusion [Recovering/Resolving]
  - Dry mouth [Unknown]
  - Eating disorder [Unknown]
  - Vaginal haemorrhage [Unknown]
  - Pulmonary pain [Unknown]

NARRATIVE: CASE EVENT DATE: 20170207
